FAERS Safety Report 25755324 (Version 1)
Quarter: 2025Q3

REPORT INFORMATION
  Report Type: Spontaneous
  Country: AR (occurrence: AR)
  Receive Date: 20250903
  Receipt Date: 20250903
  Transmission Date: 20251021
  Serious: Yes (Other)
  Sender: SANDOZ
  Company Number: AR-SANDOZ-SDZ2025AR045820

PATIENT
  Age: 7 Year
  Sex: Male
  Weight: 81 kg

DRUGS (1)
  1. OMNITROPE [Suspect]
     Active Substance: SOMATROPIN
     Indication: Growth retardation
     Dosage: 0.8 MG, QD, 7 TIMES A WEEK, STRENGTH: 10 MG
     Route: 058
     Dates: start: 20241108

REACTIONS (2)
  - Knee operation [Unknown]
  - Incorrect drug administration rate [Unknown]

NARRATIVE: CASE EVENT DATE: 20250821
